FAERS Safety Report 10563346 (Version 9)
Quarter: 2015Q2

REPORT INFORMATION
  Report Type: Report from Study
  Country: US (occurrence: US)
  Receive Date: 20141104
  Receipt Date: 20150521
  Transmission Date: 20150821
  Serious: Yes (Death, Life-Threatening, Hospitalization, Disabling, Other)
  Sender: FDA-Public Use
  Company Number: US-GLAXOSMITHKLINE-US2014011673

PATIENT
  Age: 72 Year
  Sex: Female

DRUGS (33)
  1. MULTIVITAMIN [Concomitant]
     Active Substance: VITAMINS
     Indication: SUPPLEMENTATION THERAPY
     Dosage: 1 TAB, OD
     Route: 048
     Dates: start: 2007
  2. CEFAZOLIN [Concomitant]
     Active Substance: CEFAZOLIN
     Indication: MULTI-ORGAN FAILURE
     Dosage: 2 G, ONE
     Route: 042
     Dates: start: 20141020, end: 20141020
  3. VANCOMYCIN [Concomitant]
     Active Substance: VANCOMYCIN
     Indication: MULTI-ORGAN FAILURE
     Dosage: 1 G, ONE
     Route: 042
     Dates: start: 20141020, end: 20141020
  4. LACTULOSE. [Concomitant]
     Active Substance: LACTULOSE
     Indication: MULTI-ORGAN FAILURE
     Dosage: 30 G, PRN
     Route: 048
     Dates: start: 20141020, end: 20141020
  5. FLUTICASONE FUROATE + VILANTEROL TRIFENATATE [Suspect]
     Active Substance: FLUTICASONE FUROATE\VILANTEROL TRIFENATATE
     Indication: CHRONIC OBSTRUCTIVE PULMONARY DISEASE
     Dosage: 100/25 UG QD
     Route: 055
     Dates: start: 20140322, end: 20140821
  6. HYDROCHLOROTHIAZIDE. [Concomitant]
     Active Substance: HYDROCHLOROTHIAZIDE
     Indication: HYPERTENSION
     Dosage: 25 MG/DAY, OD
     Route: 048
     Dates: start: 20140909
  7. COENZYME Q10 [Concomitant]
     Active Substance: UBIDECARENONE
     Indication: SUPPLEMENTATION THERAPY
     Dosage: 100 MG, OD
     Route: 048
  8. CALCIUM ACETATE. [Concomitant]
     Active Substance: CALCIUM ACETATE
     Indication: MULTI-ORGAN FAILURE
     Dosage: 667 MG, PRN
     Route: 048
     Dates: start: 20141020, end: 20141021
  9. LEVOTHYROXINE [Concomitant]
     Active Substance: LEVOTHYROXINE
     Indication: MULTI-ORGAN FAILURE
     Dosage: 75 MCG, ONE
     Route: 048
     Dates: start: 20141020, end: 20141020
  10. PREDNISONE. [Concomitant]
     Active Substance: PREDNISONE
     Indication: PNEUMONIA
     Dosage: 20 MG/DAY, OD
     Route: 048
     Dates: start: 20140820
  11. ATORVASTATIN CALCIUM. [Concomitant]
     Active Substance: ATORVASTATIN CALCIUM
     Indication: HYPERLIPIDAEMIA
     Dosage: 20 MG/DAY, OD
     Route: 048
     Dates: start: 20140909
  12. LEVOTHYROXINE SODIUM. [Concomitant]
     Active Substance: LEVOTHYROXINE SODIUM
     Indication: HYPOTHYROIDISM
     Dosage: 25 MG/DAY, OD
     Route: 048
     Dates: start: 20140909
  13. ASPRIN [Concomitant]
     Active Substance: ASPIRIN
     Indication: CARDIOVASCULAR EVENT PROPHYLAXIS
     Dosage: 81 MG, OD
     Route: 048
     Dates: start: 2002
  14. D-3 [Concomitant]
     Active Substance: CHOLECALCIFEROL
     Indication: SUPPLEMENTATION THERAPY
     Dosage: 2000 VIAL, OD
     Route: 042
  15. INSULIN DETEMIR [Concomitant]
     Active Substance: INSULIN DETEMIR
     Indication: MULTI-ORGAN FAILURE
     Dosage: 5 U, PRN
     Route: 058
     Dates: start: 20141020, end: 20141021
  16. ANTIBIOTICS (DRUG NAME UNKNOWN) [Concomitant]
     Active Substance: UNSPECIFIED INGREDIENT
     Indication: PNEUMONIA
     Dosage: UNKNOWN UNK, UNK, (DRUG NAME UNKNOWN)
     Route: 065
     Dates: start: 20140820, end: 20140829
  17. BENADRYL [Concomitant]
     Active Substance: DIPHENHYDRAMINE HYDROCHLORIDE
     Indication: HYPERSENSITIVITY
     Dosage: 1 CAP, PRN
     Route: 048
  18. FOSINOPRIL SODIUM. [Concomitant]
     Active Substance: FOSINOPRIL SODIUM
     Indication: HYPERTENSION
     Dosage: 12.5 MG, OD
     Route: 048
     Dates: start: 20110601
  19. AMBISONE [Concomitant]
     Active Substance: AMPHOTERICIN B
     Indication: MULTI-ORGAN FAILURE
     Dosage: 300 MG, ONE
     Route: 042
     Dates: start: 20141020, end: 20141020
  20. AMIODARONE [Concomitant]
     Active Substance: AMIODARONE
     Indication: MULTI-ORGAN FAILURE
     Dosage: 150 MG, ONE
     Route: 042
     Dates: start: 20141020, end: 20141020
  21. DILTIAZEM [Concomitant]
     Active Substance: DILTIAZEM
     Indication: MULTI-ORGAN FAILURE
     Dosage: 30 MG, PRN
     Route: 048
     Dates: start: 20141020, end: 20141020
  22. HYDROCORTISONE. [Concomitant]
     Active Substance: HYDROCORTISONE
     Indication: MULTI-ORGAN FAILURE
     Dosage: 50 MG, BID
     Route: 042
     Dates: start: 20141020, end: 20141020
  23. LORAZEPAM. [Concomitant]
     Active Substance: LORAZEPAM
     Indication: MULTI-ORGAN FAILURE
     Dosage: 2 MG, OD
     Route: 042
     Dates: start: 20141020, end: 20141021
  24. BENADRYL [Concomitant]
     Active Substance: DIPHENHYDRAMINE HYDROCHLORIDE
     Dosage: 1 CAP, PRN
     Route: 048
  25. METOCLOPRAMIDE. [Concomitant]
     Active Substance: METOCLOPRAMIDE
     Indication: MULTI-ORGAN FAILURE
     Dosage: 10 MG, PRN
     Route: 048
     Dates: start: 20141020, end: 20141021
  26. CLONIDINE HCL [Concomitant]
     Active Substance: CLONIDINE HYDROCHLORIDE
     Indication: HYPERTENSION
     Dosage: .1 MG/DAY, OD
     Route: 048
     Dates: start: 20140909
  27. AMLODIPINE BESYLATE. [Concomitant]
     Active Substance: AMLODIPINE BESYLATE
     Indication: HYPERTENSION
     Dosage: 5 MG, OD
     Route: 048
     Dates: start: 20110601
  28. KRILL OIL [Concomitant]
     Active Substance: DIETARY SUPPLEMENT
     Indication: SUPPLEMENTATION THERAPY
     Dosage: 1 TAB, OD
     Route: 048
  29. ACYCLOVIR. [Concomitant]
     Active Substance: ACYCLOVIR
     Indication: MULTI-ORGAN FAILURE
     Dosage: 1000 MG, PRN
     Route: 042
     Dates: start: 20141020, end: 20141020
  30. TRAMADOL [Concomitant]
     Active Substance: TRAMADOL
     Indication: HERPES ZOSTER
     Dosage: 50 MG, PRN
     Route: 048
     Dates: start: 20140807, end: 20141021
  31. VENTILAN HFA [Concomitant]
     Indication: CHRONIC OBSTRUCTIVE PULMONARY DISEASE
     Dosage: 2 PUFF, PRN,
     Route: 055
     Dates: start: 20110224
  32. BENZOCAINE. [Concomitant]
     Active Substance: BENZOCAINE
     Indication: MULTI-ORGAN FAILURE
     Dosage: 20 %, PRN
     Route: 061
     Dates: start: 20141020, end: 20141020
  33. ALBUTEROL W/IPRATROPIUM [Concomitant]
     Active Substance: ALBUTEROL\IPRATROPIUM
     Indication: MULTI-ORGAN FAILURE
     Dosage: 3 ML, Q3D
     Route: 055
     Dates: start: 20141020, end: 20141021

REACTIONS (2)
  - Multi-organ failure [Recovered/Resolved]
  - Septic shock [Fatal]

NARRATIVE: CASE EVENT DATE: 20140924
